FAERS Safety Report 5543022-X (Version None)
Quarter: 2007Q4

REPORT INFORMATION
  Report Type: 
  Country: None (occurrence: None)
  Receive Date: 20071210
  Receipt Date: 20071128
  Transmission Date: 20080405
  Serious: Yes (Other)
  Sender: FDA-Public Use
  Company Number: US-PFIZER INC-2007101726

PATIENT
  Sex: Female
  Weight: 83.181 kg

DRUGS (8)
  1. CHANTIX [Suspect]
     Indication: SMOKING CESSATION THERAPY
     Route: 048
  2. GEODON [Concomitant]
  3. LAMICTAL [Concomitant]
  4. KLONOPIN [Concomitant]
  5. REMERON [Concomitant]
  6. LIPITOR [Concomitant]
  7. TRICOR [Concomitant]
  8. GLUCOPHAGE [Concomitant]

REACTIONS (1)
  - DEPRESSION [None]
